FAERS Safety Report 10089654 (Version 1)
Quarter: 2014Q2

REPORT INFORMATION
  Report Type: Spontaneous
  Country: FR (occurrence: FR)
  Receive Date: 20140421
  Receipt Date: 20140421
  Transmission Date: 20141212
  Serious: Yes (Other)
  Sender: FDA-Public Use
  Company Number: FR-SHIRE-FR201401329

PATIENT
  Age: 48 Year
  Sex: Male

DRUGS (2)
  1. XAGRID [Suspect]
     Indication: PLATELET COUNT INCREASED
     Dosage: 1.5 MG(3 TABLETS), OTHER(DAILY)
     Route: 048
     Dates: start: 20130701, end: 20131110
  2. KARDEGIC [Concomitant]
     Indication: PRODUCT USED FOR UNKNOWN INDICATION
     Dosage: UNK, UNKNOWN
     Route: 065

REACTIONS (3)
  - Reticulocyte count increased [Not Recovered/Not Resolved]
  - Blood lactate dehydrogenase increased [Not Recovered/Not Resolved]
  - Off label use [Recovered/Resolved]
